FAERS Safety Report 6079215-5 (Version None)
Quarter: 2009Q1

REPORT INFORMATION
  Report Type: 
  Country: None (occurrence: None)
  Receive Date: 20090216
  Receipt Date: 20090211
  Transmission Date: 20090719
  Serious: Yes (Other)
  Sender: FDA-Public Use
  Company Number: B0559339A

PATIENT
  Age: 3 Year
  Sex: Female

DRUGS (1)
  1. AVAMYS [Suspect]
     Indication: DRUG USE FOR UNKNOWN INDICATION
     Route: 065

REACTIONS (2)
  - EPISTAXIS [None]
  - EYE HAEMORRHAGE [None]
